FAERS Safety Report 4352523-1 (Version None)
Quarter: 2004Q2

REPORT INFORMATION
  Report Type: 
  Country: None (occurrence: None)
  Receive Date: 20040409
  Receipt Date: 20040130
  Transmission Date: 20050107
  Serious: No
  Sender: FDA-Public Use
  Company Number: PHEH2003US11496

PATIENT
  Age: 44 Year
  Sex: Female

DRUGS (3)
  1. ELIDEL [Suspect]
     Indication: ECZEMA
     Dosage: BID, TOPICAL
     Route: 061
     Dates: start: 20031215
  2. METROLOTION (METRONIDAZOLE) [Suspect]
  3. SULFACETAMIDE (SULFACETAMIDE) [Concomitant]

REACTIONS (2)
  - APPLICATION SITE BURNING [None]
  - LACRIMATION INCREASED [None]
